FAERS Safety Report 13138349 (Version 1)
Quarter: 2017Q1

REPORT INFORMATION
  Report Type: Spontaneous
  Country: US (occurrence: US)
  Receive Date: 20170123
  Receipt Date: 20170123
  Transmission Date: 20170428
  Serious: No
  Sender: FDA-Public Use
  Company Number: US-UNITED THERAPEUTICS-UNT-2016-011314

PATIENT
  Age: 80 Year
  Sex: Male
  Weight: 79.37 kg

DRUGS (2)
  1. DILTIAZEM. [Concomitant]
     Active Substance: DILTIAZEM
     Indication: PRODUCT USED FOR UNKNOWN INDICATION
  2. ORENITRAM [Suspect]
     Active Substance: TREPROSTINIL
     Indication: PULMONARY ARTERIAL HYPERTENSION
     Dosage: 4 MG, TID
     Route: 048
     Dates: start: 20151228

REACTIONS (5)
  - Seasonal allergy [Unknown]
  - Nasal congestion [Unknown]
  - Faeces soft [Recovered/Resolved]
  - Palpitations [Unknown]
  - Weight increased [Unknown]

NARRATIVE: CASE EVENT DATE: 201607
